FAERS Safety Report 8242401-X (Version None)
Quarter: 2012Q1

REPORT INFORMATION
  Report Type: 
  Country: None (occurrence: None)
  Receive Date: 20120329
  Receipt Date: 20120320
  Transmission Date: 20120608
  Serious: Yes (Other)
  Sender: FDA-Public Use
  Company Number: AU-JNJFOC-20120311032

PATIENT
  Sex: Female

DRUGS (2)
  1. DURAGESIC-100 [Suspect]
     Indication: BACK PAIN
     Route: 062
     Dates: start: 20110322, end: 20110323
  2. DURAGESIC-100 [Suspect]
     Route: 062
     Dates: start: 20120323

REACTIONS (7)
  - SYNCOPE [None]
  - SPINAL DISORDER [None]
  - DIZZINESS [None]
  - DRUG DOSE OMISSION [None]
  - DUODENAL ULCER [None]
  - MALAISE [None]
  - WRONG TECHNIQUE IN DRUG USAGE PROCESS [None]
